FAERS Safety Report 9942651 (Version 1)
Quarter: 2014Q1

REPORT INFORMATION
  Report Type: Report from Study
  Country: US (occurrence: US)
  Receive Date: 20140303
  Receipt Date: 20140303
  Transmission Date: 20141002
  Serious: No
  Sender: FDA-Public Use
  Company Number: US-ABBVIE-13P-163-1045327-00

PATIENT
  Age: 57 Year
  Sex: Female
  Weight: 65.83 kg

DRUGS (8)
  1. HUMIRA [Suspect]
     Indication: PSORIATIC ARTHROPATHY
     Route: 058
     Dates: start: 2011, end: 20130117
  2. NAPROXEN [Concomitant]
     Indication: PAIN
  3. SIMVASTATIN [Concomitant]
     Indication: BLOOD CHOLESTEROL INCREASED
  4. HYDROCHLOROTHIAZID [Concomitant]
     Indication: HYPERTENSION
  5. OMEPRAZOLE [Concomitant]
     Indication: GASTROOESOPHAGEAL REFLUX DISEASE
  6. TACLONEX [Concomitant]
     Indication: PSORIASIS
  7. EYE DROPS [Concomitant]
     Indication: GLAUCOMA
  8. PENNSAIDE [Concomitant]
     Indication: PAIN

REACTIONS (7)
  - Burning sensation [Not Recovered/Not Resolved]
  - Skin swelling [Not Recovered/Not Resolved]
  - Papule [Recovered/Resolved]
  - Local swelling [Recovered/Resolved]
  - Erythema [Not Recovered/Not Resolved]
  - Drug ineffective [Not Recovered/Not Resolved]
  - Application site erythema [Recovered/Resolved]
